FAERS Safety Report 6751287-1 (Version None)
Quarter: 2010Q2

REPORT INFORMATION
  Report Type: 
  Country: None (occurrence: None)
  Receive Date: 20100602
  Receipt Date: 20100518
  Transmission Date: 20101027
  Serious: Yes (Other)
  Sender: FDA-Public Use
  Company Number: PHEH2008US05674

PATIENT
  Sex: Female

DRUGS (10)
  1. AREDIA [Suspect]
     Indication: BONE DENSITY DECREASED
     Dosage: 90 MG IV
     Dates: end: 20041109
  2. AMOXIL ^AYERST LAB^ [Concomitant]
  3. DOXYCYCLINE [Concomitant]
     Dosage: 100 MG, UNK
  4. CHLORHEXIDINE GLUCONATE [Concomitant]
  5. DURICEF [Concomitant]
  6. PERIDEX [Concomitant]
  7. AROMASIN [Concomitant]
     Dosage: UNK
     Dates: start: 20050601, end: 20060901
  8. VIOXX [Concomitant]
     Dosage: UNK
  9. ZITHROMAX [Concomitant]
     Dosage: UNK
     Dates: start: 20030615
  10. MULTI-VITAMINS [Concomitant]

REACTIONS (37)
  - ACTINIC KERATOSIS [None]
  - ACTINOMYCOSIS [None]
  - ANXIETY [None]
  - BONE DISORDER [None]
  - BONE SCAN ABNORMAL [None]
  - COUGH [None]
  - DENTURE WEARER [None]
  - DYSPNOEA [None]
  - FALL [None]
  - HAND FRACTURE [None]
  - HYPERSENSITIVITY [None]
  - HYPOAESTHESIA FACIAL [None]
  - INJURY [None]
  - JOINT RANGE OF MOTION DECREASED [None]
  - KYPHOSIS [None]
  - MASTICATION DISORDER [None]
  - METASTASES TO BONE [None]
  - OCULAR HYPERAEMIA [None]
  - OEDEMA PERIPHERAL [None]
  - ORAL TORUS [None]
  - OSTEOARTHRITIS [None]
  - OSTEOMYELITIS [None]
  - OSTEONECROSIS OF JAW [None]
  - OSTEOPENIA [None]
  - PAIN [None]
  - PAIN IN JAW [None]
  - PHYSICAL DISABILITY [None]
  - PRIMARY SEQUESTRUM [None]
  - PYREXIA [None]
  - RHINORRHOEA [None]
  - ROSACEA [None]
  - SINUSITIS [None]
  - SKIN CANCER [None]
  - SPINAL OSTEOARTHRITIS [None]
  - TOOTH EXTRACTION [None]
  - TOOTHACHE [None]
  - XEROSIS [None]
